FAERS Safety Report 9497415 (Version 3)
Quarter: 2013Q4

REPORT INFORMATION
  Report Type: Spontaneous
  Country: US (occurrence: US)
  Receive Date: 20130904
  Receipt Date: 20131106
  Transmission Date: 20140711
  Serious: Yes (Other)
  Sender: FDA-Public Use
  Company Number: US-AMGEN-USASP2013054585

PATIENT
  Age: 45 Year
  Sex: Female
  Weight: 83.45 kg

DRUGS (17)
  1. ENBREL [Suspect]
     Indication: RHEUMATOID ARTHRITIS
     Dosage: 50 MG, 2 TIMES/WK
     Route: 058
     Dates: start: 20060308
  2. LEUCOVORIN CA [Concomitant]
     Dosage: 5 MG, UNK
  3. METHOTREXATE [Concomitant]
     Dosage: 2.5 MG, UNK
  4. PREDNISONE [Concomitant]
     Dosage: 1 MG, UNK
  5. SLOW FE [Concomitant]
     Dosage: 142 MG, UNK
  6. NORVASC [Concomitant]
     Dosage: 2.5 MG, UNK
  7. VICODIN [Concomitant]
     Dosage: 5-300 MG, UNK
  8. TRAZODONE [Concomitant]
     Dosage: 100 MG, UNK
  9. TIZANIDINE [Concomitant]
     Dosage: 2 MG, UNK
  10. OMEPRAZOLE [Concomitant]
     Dosage: 20 MG, UNK
  11. DIAZEPAM [Concomitant]
     Dosage: 5 MG, UNK
  12. ALBUTEROL                          /00139501/ [Concomitant]
     Dosage: 90 MUG, UNK
  13. ESTRACE [Concomitant]
     Dosage: 0.1 MG/GM, UNK
  14. LUNESTA [Concomitant]
     Dosage: 1 MG, UNK
  15. MULTIVITAMINS, PLAIN [Concomitant]
     Dosage: UNK, CHEWABLE SILVER
  16. TYLENOL                            /00020001/ [Concomitant]
     Dosage: 500 MG, UNK
  17. LEVOXYL [Concomitant]
     Dosage: 25 MUG, UNK

REACTIONS (7)
  - Pharyngitis streptococcal [Unknown]
  - Fatigue [Unknown]
  - Insomnia [Not Recovered/Not Resolved]
  - Contusion [Unknown]
  - Fibromyalgia [Not Recovered/Not Resolved]
  - Laceration [Recovered/Resolved]
  - Injection site pain [Recovered/Resolved]
